FAERS Safety Report 7804146-7 (Version None)
Quarter: 2011Q4

REPORT INFORMATION
  Report Type: 
  Country: None (occurrence: None)
  Receive Date: 20111010
  Receipt Date: 20110318
  Transmission Date: 20120403
  Serious: No
  Sender: FDA-Public Use
  Company Number: US-B.I. PHARMACEUTICALS,INC./RIDGEFIELD-2011-BP-08615BP

PATIENT

DRUGS (1)
  1. AGGRENOX [Suspect]

REACTIONS (1)
  - INCORRECT STORAGE OF DRUG [None]
